FAERS Safety Report 17203398 (Version 1)
Quarter: 2019Q4

REPORT INFORMATION
  Report Type: Report from Study
  Country: DE (occurrence: DE)
  Receive Date: 20191226
  Receipt Date: 20191226
  Transmission Date: 20200122
  Serious: Yes (Hospitalization)
  Sender: FDA-Public Use
  Company Number: DE-MYLANLABS-2019M1126894

PATIENT
  Sex: Female
  Weight: 68 kg

DRUGS (4)
  1. KISQALI [Suspect]
     Active Substance: RIBOCICLIB
     Dosage: 400 MG, QD, SCHEME 21 DAYS INTAKE, 7 DAYS PAUSE
     Route: 048
     Dates: start: 20190802
  2. TORASEMIDE [Suspect]
     Active Substance: TORSEMIDE
     Indication: PRODUCT USED FOR UNKNOWN INDICATION
     Dosage: 2.5 MG, QD (IN THE MORNING)
     Route: 065
  3. LETROZOLE. [Suspect]
     Active Substance: LETROZOLE
     Indication: BREAST CANCER METASTATIC
     Dosage: 2.5 MILLIGRAM, QD
     Route: 048
     Dates: start: 20190715
  4. KISQALI [Suspect]
     Active Substance: RIBOCICLIB
     Indication: BREAST CANCER METASTATIC
     Dosage: 600 MG, QD, SCHEME 21 DAYS INTAKE, 7 DAYS PAUSE
     Route: 048
     Dates: start: 20190715, end: 20190726

REACTIONS (4)
  - Nausea [Recovered/Resolved]
  - Decreased appetite [Recovered/Resolved]
  - Fatigue [Recovered/Resolved]
  - Oedema peripheral [Recovered/Resolved]

NARRATIVE: CASE EVENT DATE: 20190716
